FAERS Safety Report 7202168-0 (Version None)
Quarter: 2010Q4

REPORT INFORMATION
  Report Type: 
  Country: None (occurrence: None)
  Receive Date: 20101229
  Receipt Date: 20101216
  Transmission Date: 20110411
  Serious: Yes (Other)
  Sender: FDA-Public Use
  Company Number: PHHY2010US86870

PATIENT

DRUGS (1)
  1. GLEEVEC [Suspect]

REACTIONS (1)
  - CHROMOSOME ANALYSIS ABNORMAL [None]
